FAERS Safety Report 10334478 (Version 2)
Quarter: 2014Q3

REPORT INFORMATION
  Report Type: Spontaneous
  Country: US (occurrence: BR)
  Receive Date: 20140723
  Receipt Date: 20140804
  Transmission Date: 20150326
  Serious: Yes (Other)
  Sender: FDA-Public Use
  Company Number: 2014SP004315

PATIENT
  Sex: Female

DRUGS (3)
  1. ETANERCEPT [Suspect]
     Active Substance: ETANERCEPT
     Indication: PRODUCT USED FOR UNKNOWN INDICATION
  2. METHOTREXATE [Suspect]
     Active Substance: METHOTREXATE
     Indication: PRODUCT USED FOR UNKNOWN INDICATION
  3. METHOTREXATE [Suspect]
     Active Substance: METHOTREXATE
     Indication: PRODUCT USED FOR UNKNOWN INDICATION

REACTIONS (6)
  - Alopecia [Recovered/Resolved]
  - Lupus-like syndrome [Recovering/Resolving]
  - DNA antibody positive [Recovering/Resolving]
  - Rash [Recovered/Resolved]
  - Arthritis [Recovering/Resolving]
  - Antinuclear antibody positive [Recovering/Resolving]
